FAERS Safety Report 26214804 (Version 1)
Quarter: 2025Q4

REPORT INFORMATION
  Report Type: Spontaneous
  Country: GB (occurrence: GB)
  Receive Date: 20251230
  Receipt Date: 20251230
  Transmission Date: 20260118
  Serious: Yes (Other)
  Sender: DR REDDYS
  Company Number: None

PATIENT
  Age: 22 Year

DRUGS (2)
  1. ATOMOXETINE [Suspect]
     Active Substance: ATOMOXETINE
     Indication: Attention deficit hyperactivity disorder
  2. ATOMOXETINE [Suspect]
     Active Substance: ATOMOXETINE
     Dosage: 80MG PER DAY

REACTIONS (1)
  - Nightmare [Recovered/Resolved]
